FAERS Safety Report 7729847-0 (Version None)
Quarter: 2011Q3

REPORT INFORMATION
  Report Type: 
  Country: None (occurrence: None)
  Receive Date: 20110906
  Receipt Date: 20110831
  Transmission Date: 20111222
  Serious: Yes (Life-Threatening, Hospitalization)
  Sender: FDA-Public Use
  Company Number: FR-ASTRAZENECA-2011SE52397

PATIENT
  Age: 16563 Day
  Sex: Male

DRUGS (4)
  1. CELOCURINE [Suspect]
     Indication: GENERAL ANAESTHESIA
     Route: 042
     Dates: start: 20110414, end: 20110414
  2. DIPRIVAN [Suspect]
     Route: 042
     Dates: start: 20110417, end: 20110417
  3. DIPRIVAN [Suspect]
     Indication: GENERAL ANAESTHESIA
     Route: 042
     Dates: start: 20110414, end: 20110414
  4. CELOCURINE [Suspect]
     Route: 042
     Dates: start: 20110417, end: 20110417

REACTIONS (2)
  - HYPOTENSION [None]
  - ANAPHYLACTIC SHOCK [None]
